FAERS Safety Report 19824249 (Version 2)
Quarter: 2021Q4

REPORT INFORMATION
  Report Type: Spontaneous
  Country: US (occurrence: US)
  Receive Date: 20210913
  Receipt Date: 20211006
  Transmission Date: 20220303
  Serious: No
  Sender: FDA-Public Use
  Company Number: US-TEVA-2021-US-1944086

PATIENT
  Age: 66 Year
  Sex: Female
  Weight: 48.99 kg

DRUGS (7)
  1. AJOVY [Suspect]
     Active Substance: FREMANEZUMAB-VFRM
     Indication: Migraine
     Route: 065
     Dates: start: 20210525
  2. AJOVY [Suspect]
     Active Substance: FREMANEZUMAB-VFRM
     Route: 065
     Dates: start: 20210625
  3. AJOVY [Suspect]
     Active Substance: FREMANEZUMAB-VFRM
     Route: 065
     Dates: start: 20210725
  4. AJOVY [Suspect]
     Active Substance: FREMANEZUMAB-VFRM
     Route: 065
     Dates: start: 202108
  5. IMIPRAMINE [Concomitant]
     Active Substance: IMIPRAMINE
  6. KEPPRA [Concomitant]
     Active Substance: LEVETIRACETAM
  7. ZOMIG [Concomitant]
     Active Substance: ZOLMITRIPTAN

REACTIONS (4)
  - Rash [Recovered/Resolved]
  - Urticaria [Not Recovered/Not Resolved]
  - Dermatitis contact [Recovered/Resolved]
  - Pigmentation disorder [Unknown]

NARRATIVE: CASE EVENT DATE: 20210801
